FAERS Safety Report 18194523 (Version 1)
Quarter: 2020Q3

REPORT INFORMATION
  Report Type: Spontaneous
  Country: US (occurrence: US)
  Receive Date: 20200825
  Receipt Date: 20200825
  Transmission Date: 20201103
  Serious: No
  Sender: FDA-Public Use
  Company Number: US-MAYNE PHARMA-2020MYN000115

PATIENT

DRUGS (4)
  1. ESTAZOLAM. [Suspect]
     Active Substance: ESTAZOLAM
     Dosage: 5 MG, QD
     Route: 048
  2. ESTAZOLAM. [Suspect]
     Active Substance: ESTAZOLAM
     Indication: INSOMNIA
     Dosage: 3 MG, QD
     Route: 048
     Dates: start: 201909
  3. BENADRYL [Concomitant]
     Active Substance: DIPHENHYDRAMINE HYDROCHLORIDE
     Indication: PRODUCT USED FOR UNKNOWN INDICATION
     Dosage: UNK
     Route: 048
  4. ALIVE GUMMIES [Concomitant]
     Indication: PRODUCT USED FOR UNKNOWN INDICATION
     Dosage: UNK, QD
     Route: 048

REACTIONS (13)
  - Drug ineffective [Unknown]
  - Product substitution issue [Unknown]
  - Quality of life decreased [Unknown]
  - Insomnia [Not Recovered/Not Resolved]
  - Terminal insomnia [Not Recovered/Not Resolved]
  - Dyspepsia [Unknown]
  - Therapeutic product effect delayed [Unknown]
  - Middle insomnia [Not Recovered/Not Resolved]
  - Oral discomfort [Unknown]
  - Fatigue [Unknown]
  - Intentional product use issue [Unknown]
  - Suspected product quality issue [Unknown]
  - Off label use [Unknown]

NARRATIVE: CASE EVENT DATE: 201909
